FAERS Safety Report 20500626 (Version 1)
Quarter: 2022Q1

REPORT INFORMATION
  Report Type: Spontaneous
  Country: US (occurrence: US)
  Receive Date: 20220222
  Receipt Date: 20220222
  Transmission Date: 20220423
  Serious: Yes (Other)
  Sender: FDA-Public Use
  Company Number: US-MYLANLABS-2022M1014120

PATIENT
  Sex: Female

DRUGS (12)
  1. FENTANYL [Suspect]
     Active Substance: FENTANYL
     Indication: Pain management
     Dosage: UNK
     Route: 062
  2. MORPHINE [Suspect]
     Active Substance: MORPHINE
     Indication: Pain management
     Dosage: UNK (EXTENDED-RELEASE)
     Route: 048
  3. MORPHINE [Suspect]
     Active Substance: MORPHINE
     Dosage: 150 MILLIGRAM, MORPHINE EQUIVALENT DAILY DOSE; ON WEEKS 1 AND...
     Route: 048
  4. MORPHINE [Suspect]
     Active Substance: MORPHINE
     Dosage: 130 MILLIGRAM (ON WEEKS 3 AND 4 AFTER THE FULVESTRANT DOSE)
     Route: 048
  5. OXYCODONE [Interacting]
     Active Substance: OXYCODONE
     Indication: Pain management
     Dosage: 27 MILLIGRAM, BID EXTENDED-RELEASE
     Route: 048
  6. OXYCODONE [Interacting]
     Active Substance: OXYCODONE
     Dosage: 18 MILLIGRAM, Q8H
     Route: 048
  7. ACETAMINOPHEN\HYDROCODONE [Concomitant]
     Active Substance: ACETAMINOPHEN\HYDROCODONE
     Indication: Pain management
     Dosage: UNK
     Route: 048
  8. ACETAMINOPHEN\HYDROCODONE [Concomitant]
     Active Substance: ACETAMINOPHEN\HYDROCODONE
     Dosage: Q4H, 6 DOSES A DAY ON WEEKS 1-2 AND 4 DOSES A DAY ON WEEKS 3-4
     Route: 048
  9. FULVESTRANT [Concomitant]
     Active Substance: FULVESTRANT
     Indication: Breast cancer metastatic
     Dosage: UNK
     Route: 065
  10. PALBOCICLIB [Concomitant]
     Active Substance: PALBOCICLIB
     Indication: Breast cancer metastatic
     Dosage: UNK
     Route: 065
  11. DENOSUMAB [Concomitant]
     Active Substance: DENOSUMAB
     Indication: Bone pain
     Dosage: 120 MILLIGRAM EVERY 6 WEEKS
     Route: 058
  12. LORATADINE [Concomitant]
     Active Substance: LORATADINE
     Indication: Pain
     Dosage: UNK
     Route: 065

REACTIONS (1)
  - Drug ineffective [Unknown]
